FAERS Safety Report 5055214-7 (Version None)
Quarter: 2006Q3

REPORT INFORMATION
  Report Type: 
  Country: None (occurrence: None)
  Receive Date: 20060714
  Receipt Date: 20060705
  Transmission Date: 20061208
  Serious: No
  Sender: FDA-Public Use
  Company Number: E2020-00178-SPO-IT

PATIENT
  Age: 76 Year
  Sex: Female

DRUGS (4)
  1. DONEPEZIL HCL [Suspect]
     Indication: COGNITIVE DISORDER
     Dosage: 5 MG, 1 IN 1 D, ORAL
     Route: 048
     Dates: start: 20060520, end: 20060620
  2. SINEMET [Concomitant]
  3. METFORMINE HYDROCHLORIDE (METFORMIN HYDROCHLORIDE) [Concomitant]
  4. GABAPENTIN [Concomitant]

REACTIONS (1)
  - HYPERTENSIVE CRISIS [None]
